FAERS Safety Report 4818118-8 (Version None)
Quarter: 2005Q3

REPORT INFORMATION
  Report Type: 
  Country: None (occurrence: None)
  Receive Date: 20050929
  Receipt Date: 20050826
  Transmission Date: 20060218
  Serious: No
  Sender: FDA-Public Use
  Company Number: 05P-163-0309513-00

PATIENT
  Age: 53 Year
  Sex: Female
  Weight: 83.4619 kg

DRUGS (4)
  1. HUMIRA [Suspect]
     Indication: RHEUMATOID ARTHRITIS
     Dosage: 40 MG, 1 IN 1 WK, SUBCUTANEOUS
     Route: 058
     Dates: start: 20050701, end: 20050801
  2. CLONIDINE [Concomitant]
  3. PANTOPRAZOLE [Concomitant]
  4. SALBUTAMOL [Concomitant]

REACTIONS (2)
  - ARTHRITIS [None]
  - RASH [None]
